FAERS Safety Report 8545649-X (Version None)
Quarter: 2012Q3

REPORT INFORMATION
  Report Type: 
  Country: None (occurrence: None)
  Receive Date: 20120727
  Receipt Date: 20110919
  Transmission Date: 20120928
  Serious: Yes (Other)
  Sender: FDA-Public Use
  Company Number: CO-PFIZER INC-2012178224

PATIENT
  Age: 63 Year
  Sex: Male

DRUGS (4)
  1. LIPITOR [Suspect]
     Dosage: 30 MG, 1X/DAY
  2. OLMESARTAN MEDOXOMIL [Suspect]
     Dosage: 30 MG, 2X/DAY
  3. LOVASTATIN [Concomitant]
     Dosage: 60 MG, 2X/DAY
  4. ACETYLSALICYLIC ACID [Concomitant]
     Dosage: 30 MG, 1X/DAY

REACTIONS (4)
  - HYPERLIPIDAEMIA [None]
  - RENAL FAILURE CHRONIC [None]
  - ESSENTIAL HYPERTENSION [None]
  - HYPERTENSIVE EMERGENCY [None]
